FAERS Safety Report 8789505 (Version 1)
Quarter: 2012Q4

REPORT INFORMATION
  Report Type: Spontaneous
  Country: US (occurrence: None)
  Receive Date: 20120910
  Receipt Date: 20120910
  Transmission Date: 20130627
  Serious: Yes (Hospitalization)
  Sender: FDA-Public Use
  Company Number: None

PATIENT
  Age: 52 Year
  Sex: Female
  Weight: 80.74 kg

DRUGS (5)
  1. NERATINIB [Suspect]
     Indication: METASTATIC BREAST CANCER
     Route: 048
     Dates: start: 20120727
  2. ATIVAN [Concomitant]
  3. COMPAZINE [Concomitant]
  4. CYMBALTA [Concomitant]
  5. LOPERAMIDE HCL [Concomitant]

REACTIONS (6)
  - Hemiparesis [None]
  - Ataxia [None]
  - Metastases to central nervous system [None]
  - Vasogenic cerebral oedema [None]
  - Hypokalaemia [None]
  - Urinary tract infection [None]
